FAERS Safety Report 21907246 (Version 1)
Quarter: 2023Q1

REPORT INFORMATION
  Report Type: Other
  Country: PE (occurrence: None)
  Receive Date: 20230125
  Receipt Date: 20230125
  Transmission Date: 20230418
  Serious: Yes (Hospitalization, Other)
  Sender: FDA-Public Use
  Company Number: PE-ROCHE-3267115

PATIENT
  Age: 35 Year
  Sex: Male

DRUGS (1)
  1. OCREVUS [Suspect]
     Active Substance: OCRELIZUMAB
     Indication: Relapsing-remitting multiple sclerosis
     Route: 042
     Dates: start: 20210415

REACTIONS (8)
  - Vertigo [Unknown]
  - Nausea [Recovering/Resolving]
  - Metamorphopsia [Unknown]
  - Diplopia [Unknown]
  - Bladder sphincter atony [Unknown]
  - Nystagmus [Unknown]
  - Ataxia [Unknown]
  - Multiple sclerosis [Unknown]
